FAERS Safety Report 15613926 (Version 3)
Quarter: 2019Q4

REPORT INFORMATION
  Report Type: Spontaneous
  Country: US (occurrence: US)
  Receive Date: 20181113
  Receipt Date: 20191118
  Transmission Date: 20200122
  Serious: No
  Sender: FDA-Public Use
  Company Number: US-PFIZER INC-2018465960

PATIENT
  Age: 71 Year
  Sex: Female

DRUGS (4)
  1. PCN 200 [HERBALS] [Suspect]
     Active Substance: HERBALS
  2. FENOFIBRATE. [Suspect]
     Active Substance: FENOFIBRATE
     Dosage: UNK
  3. TRICOR [Suspect]
     Active Substance: FENOFIBRATE
     Dosage: UNK
  4. CELEBREX [Suspect]
     Active Substance: CELECOXIB
     Dosage: UNK

REACTIONS (1)
  - Drug hypersensitivity [Unknown]
